FAERS Safety Report 15763568 (Version 2)
Quarter: 2019Q1

REPORT INFORMATION
  Report Type: Spontaneous
  Country: US (occurrence: US)
  Receive Date: 20181227
  Receipt Date: 20190128
  Transmission Date: 20190417
  Serious: No
  Sender: FDA-Public Use
  Company Number: US-ASTRAZENECA-2018SF59039

PATIENT
  Age: 1037 Month
  Sex: Female
  Weight: 59 kg

DRUGS (1)
  1. BYDUREON BCISE [Suspect]
     Active Substance: EXENATIDE
     Indication: DIABETES MELLITUS
     Route: 058
     Dates: start: 201802

REACTIONS (3)
  - Wrong technique in device usage process [Unknown]
  - Product dose omission [Unknown]
  - Injection site nodule [Unknown]

NARRATIVE: CASE EVENT DATE: 201802
